FAERS Safety Report 8965282 (Version 3)
Quarter: 2013Q1

REPORT INFORMATION
  Report Type: Report from Study
  Country: US (occurrence: US)
  Receive Date: 20121214
  Receipt Date: 20130221
  Transmission Date: 20140127
  Serious: No
  Sender: FDA-Public Use
  Company Number: US-VERTEX PHARMACEUTICALS INC.-2012-026088

PATIENT
  Age: 65 Year
  Sex: Male

DRUGS (3)
  1. VX-950 (TELAPREVIR) [Suspect]
     Indication: HEPATITIS C
     Dosage: 750 MG, TID
     Route: 048
     Dates: start: 20121203
  2. RIBASPHERE [Suspect]
     Indication: HEPATITIS C
     Dosage: 400MG IN AM AND 400 MG IN PM
     Route: 048
     Dates: start: 20121203
  3. PEGASYS [Suspect]
     Indication: HEPATITIS C
     Dosage: 180 ?G, QW
     Route: 058
     Dates: start: 20121203

REACTIONS (3)
  - Influenza like illness [Unknown]
  - Off label use [Unknown]
  - Fatigue [Unknown]
